FAERS Safety Report 5578689-3 (Version None)
Quarter: 2007Q4

REPORT INFORMATION
  Report Type: 
  Country: None (occurrence: None)
  Receive Date: 20071227
  Receipt Date: 20071211
  Transmission Date: 20080405
  Serious: Yes (Hospitalization)
  Sender: FDA-Public Use
  Company Number: 2007EU002718

PATIENT
  Age: 60 Year

DRUGS (3)
  1. TACROLIMUS [Suspect]
     Indication: LUNG TRANSPLANT
  2. MYCOPHENOLATE MOFETIL [Suspect]
     Indication: LUNG TRANSPLANT
  3. CORTICOSTEROIDS() [Suspect]
     Indication: LUNG TRANSPLANT

REACTIONS (2)
  - LUNG TRANSPLANT REJECTION [None]
  - PULMONARY FUNCTION TEST DECREASED [None]
